FAERS Safety Report 24538630 (Version 1)
Quarter: 2024Q4

REPORT INFORMATION
  Report Type: Spontaneous
  Country: US (occurrence: US)
  Receive Date: 20241023
  Receipt Date: 20241023
  Transmission Date: 20250114
  Serious: No
  Sender: CHIESI
  Company Number: US-CHIESI-2024CHF02262

PATIENT
  Age: 2 Year
  Sex: Female
  Weight: 14 kg

DRUGS (3)
  1. FERRIPROX [Suspect]
     Active Substance: DEFERIPRONE
     Indication: Haemochromatosis
     Dosage: 3.5 MILLILITER, TID
     Route: 048
     Dates: start: 20240326
  2. FERRIPROX [Suspect]
     Active Substance: DEFERIPRONE
     Indication: Red blood cell transfusion
  3. FERRIPROX [Suspect]
     Active Substance: DEFERIPRONE
     Indication: Thalassaemia beta

REACTIONS (5)
  - Vomiting [Not Recovered/Not Resolved]
  - Cough [Not Recovered/Not Resolved]
  - Product use complaint [Not Recovered/Not Resolved]
  - Off label use [Not Recovered/Not Resolved]
  - Product complaint [Recovered/Resolved]

NARRATIVE: CASE EVENT DATE: 20240326
